FAERS Safety Report 17144835 (Version 1)
Quarter: 2019Q4

REPORT INFORMATION
  Report Type: Spontaneous
  Country: NL (occurrence: NL)
  Receive Date: 20191212
  Receipt Date: 20191212
  Transmission Date: 20200122
  Serious: Yes (Other)
  Sender: FDA-Public Use
  Company Number: NL-MYLANLABS-2019M1121301

PATIENT
  Age: 23 Year
  Sex: Female
  Weight: 70 kg

DRUGS (5)
  1. CLINDAMYCINE                       /00166001/ [Concomitant]
     Active Substance: CLINDAMYCIN
     Dosage: 1DD DUN ^S AVONDS, C.G., HERHAALRECEPT 6 MAANDEN.
     Route: 003
  2. INSULINE DETEMIR [Concomitant]
     Dosage: 1 X PER DAG VV
     Route: 058
  3. INSULINE ASPARTATE [Concomitant]
     Dosage: 3 X PER DAG VV
     Route: 058
  4. TRETINOINE [Concomitant]
     Dosage: 1DD DUN ^S MORGENS ER BIJ
     Route: 003
  5. MINOCYCLINE [Suspect]
     Active Substance: MINOCYCLINE HYDROCHLORIDE
     Indication: ACNE
     Dosage: 1D1T
     Route: 048
     Dates: start: 20190923, end: 20190926

REACTIONS (2)
  - Diabetes mellitus inadequate control [Recovering/Resolving]
  - Hyperglycaemia [Recovering/Resolving]

NARRATIVE: CASE EVENT DATE: 20190924
